FAERS Safety Report 4559957-0 (Version None)
Quarter: 2005Q1

REPORT INFORMATION
  Report Type: 
  Country: None (occurrence: None)
  Receive Date: 20050120
  Receipt Date: 20050120
  Transmission Date: 20050727
  Serious: Yes (Other)
  Sender: FDA-Public Use
  Company Number: None

PATIENT
  Sex: Male

DRUGS (1)
  1. CARBAMAZEPINE [Suspect]
     Indication: CONVULSION
     Dates: start: 19910101

REACTIONS (2)
  - DRUG LEVEL FLUCTUATING [None]
  - PHARMACEUTICAL PRODUCT COMPLAINT [None]
